FAERS Safety Report 8085669-5 (Version None)
Quarter: 2012Q1

REPORT INFORMATION
  Report Type: 
  Country: None (occurrence: None)
  Receive Date: 20120128
  Receipt Date: 20110602
  Transmission Date: 20120608
  Serious: No
  Sender: FDA-Public Use
  Company Number: US-ABBOTT-11P-163-0729900-00

PATIENT
  Sex: Male
  Weight: 97.61 kg

DRUGS (4)
  1. PREDNISONE TAB [Concomitant]
     Indication: COLITIS ULCERATIVE
  2. HUMIRA [Suspect]
     Dates: start: 20110101
  3. URSODIOL [Concomitant]
     Indication: COLITIS ULCERATIVE
  4. HUMIRA [Suspect]
     Indication: COLITIS ULCERATIVE
     Route: 058
     Dates: start: 20100301, end: 20110101

REACTIONS (4)
  - INSOMNIA [None]
  - SCAR [None]
  - COLITIS ULCERATIVE [None]
  - ACNE [None]
